FAERS Safety Report 7543102-3 (Version None)
Quarter: 2011Q2

REPORT INFORMATION
  Report Type: 
  Country: None (occurrence: None)
  Receive Date: 20110613
  Receipt Date: 20110607
  Transmission Date: 20111010
  Serious: Yes (Other)
  Sender: FDA-Public Use
  Company Number: US-PFIZER INC-2011064447

PATIENT
  Sex: Female

DRUGS (2)
  1. XANAX [Concomitant]
     Dosage: 0.5 UNK, 4X/DAY AS NEEDED
  2. PRISTIQ [Suspect]
     Indication: DEPRESSION
     Dosage: 50 UNK, UNK
     Route: 048
     Dates: start: 20110101

REACTIONS (1)
  - CARDIAC DISORDER [None]
